FAERS Safety Report 7522932-8 (Version None)
Quarter: 2011Q2

REPORT INFORMATION
  Report Type: 
  Country: None (occurrence: None)
  Receive Date: 20110603
  Receipt Date: 20100708
  Transmission Date: 20111010
  Serious: No
  Sender: FDA-Public Use
  Company Number: US-BAYER-201027811NA

PATIENT
  Age: 76 Year
  Sex: Female

DRUGS (7)
  1. TRIAMTERENE AND HYDROCHLOROTHIAZIDE [Concomitant]
  2. AVELOX [Suspect]
     Indication: SINUSITIS
     Dosage: 400 MG, TID
     Route: 048
     Dates: start: 20100601, end: 20100610
  3. CARVEDILOL [Concomitant]
  4. LEVOTHYROXINE SODIUM [Concomitant]
     Dosage: UNK
  5. OMEPRAZOLE [Concomitant]
  6. LISINOPRIL [Concomitant]
  7. EVISTA [Concomitant]

REACTIONS (4)
  - MUSCLE SPASMS [None]
  - SPINAL DISORDER [None]
  - ARTHRITIS [None]
  - BONE PAIN [None]
